FAERS Safety Report 7782027-5 (Version None)
Quarter: 2011Q3

REPORT INFORMATION
  Report Type: 
  Country: None (occurrence: None)
  Receive Date: 20110927
  Receipt Date: 20110921
  Transmission Date: 20111222
  Serious: Yes (Death, Life-Threatening, Hospitalization)
  Sender: FDA-Public Use
  Company Number: PHHY2011JP75781

PATIENT
  Sex: Female

DRUGS (15)
  1. BANAN [Concomitant]
     Dosage: 2 DF, DAILY
     Route: 048
     Dates: start: 20090425
  2. MINOFIT [Concomitant]
     Dosage: 20 ML, UNK
     Route: 042
  3. CARNACULIN [Concomitant]
     Dosage: 150 IU, UNK
     Route: 048
     Dates: start: 20090401, end: 20090509
  4. BETAMETHASONE [Concomitant]
     Dosage: 8 GTT, UNK
     Route: 048
     Dates: start: 20090401, end: 20090509
  5. MAOTO [Concomitant]
     Dosage: 7.5 G, UNK
     Route: 048
     Dates: start: 20090427
  6. VOLTAREN [Suspect]
     Indication: PYREXIA
     Dosage: 12.5MG TO 25MG DAILY
     Route: 054
     Dates: start: 20090429, end: 20090510
  7. ACETAMINOPHEN [Suspect]
     Dosage: 400 MG, UNK
     Route: 048
     Dates: start: 20090502, end: 20090506
  8. BIOFERMIN [Concomitant]
     Dosage: 3 DF, DAILY
     Route: 048
     Dates: start: 20090425
  9. TRANEXAMIC ACID [Concomitant]
     Dosage: 3 DF, DAILY
     Route: 048
     Dates: start: 20090427
  10. SOLU-MEDROL [Concomitant]
     Dosage: UNK UKN, UNK
  11. ACETAMINOPHEN [Suspect]
     Indication: PYREXIA
     Dosage: 200 MG, UNK
     Route: 048
     Dates: start: 20090425
  12. POTASSIUM CHLORIDE [Concomitant]
     Dosage: 2000 ML, UNK
     Route: 042
     Dates: start: 20090430, end: 20090511
  13. ROCEPHIN [Suspect]
     Indication: PYELONEPHRITIS
     Dosage: 1 G, DAILY
     Route: 042
     Dates: start: 20090429, end: 20090510
  14. METILON [Suspect]
     Indication: PYREXIA
     Dosage: 125 MG, QD
     Route: 030
     Dates: start: 20090501, end: 20090501
  15. LEVOFLOXACIN [Concomitant]
     Dosage: 3 DF, UNK
     Route: 048
     Dates: start: 20090427

REACTIONS (28)
  - WHITE BLOOD CELL COUNT INCREASED [None]
  - ORAL DISCOMFORT [None]
  - ASPARTATE AMINOTRANSFERASE INCREASED [None]
  - DIARRHOEA HAEMORRHAGIC [None]
  - CONDITION AGGRAVATED [None]
  - HAEMATOCRIT DECREASED [None]
  - PLATELET COUNT DECREASED [None]
  - BLOOD SODIUM DECREASED [None]
  - DERMATITIS ALLERGIC [None]
  - BLOOD LACTATE DEHYDROGENASE INCREASED [None]
  - COUGH [None]
  - HAEMOGLOBIN DECREASED [None]
  - HYPERSENSITIVITY [None]
  - SEPSIS [None]
  - ORAL MUCOSA EROSION [None]
  - NEUTROPHIL COUNT INCREASED [None]
  - BLOOD GLUCOSE INCREASED [None]
  - LIVER DISORDER [None]
  - RED BLOOD CELL COUNT DECREASED [None]
  - MONOCYTE COUNT DECREASED [None]
  - WHITE BLOOD CELL COUNT DECREASED [None]
  - TOXIC EPIDERMAL NECROLYSIS [None]
  - BLOOD BILIRUBIN INCREASED [None]
  - ALANINE AMINOTRANSFERASE INCREASED [None]
  - LYMPHOCYTE COUNT DECREASED [None]
  - GENERALISED ERYTHEMA [None]
  - PRURITUS GENERALISED [None]
  - BLOOD UREA INCREASED [None]
